FAERS Safety Report 7971657-3 (Version None)
Quarter: 2011Q4

REPORT INFORMATION
  Report Type: 
  Country: None (occurrence: None)
  Receive Date: 20111212
  Receipt Date: 20111205
  Transmission Date: 20120403
  Serious: Yes (Hospitalization)
  Sender: FDA-Public Use
  Company Number: FR-ABBOTT-11P-056-0881265-00

PATIENT
  Age: 40 Year
  Sex: Male

DRUGS (4)
  1. DEPAKOTE [Suspect]
     Indication: AFFECTIVE DISORDER
     Route: 048
     Dates: start: 20110426
  2. PROZAC [Suspect]
     Indication: DEPRESSION
     Route: 048
     Dates: start: 20110426
  3. TERCIAN [Suspect]
     Indication: PRODUCT USED FOR UNKNOWN INDICATION
     Route: 048
     Dates: start: 20110427
  4. OLANZAPINE [Suspect]
     Indication: PSYCHOTIC DISORDER
     Route: 030
     Dates: start: 20101112

REACTIONS (1)
  - TENDON RUPTURE [None]
